FAERS Safety Report 9027919 (Version 1)
Quarter: 2013Q1

REPORT INFORMATION
  Report Type: Spontaneous
  Country: GB (occurrence: GB)
  Receive Date: 20130123
  Receipt Date: 20130123
  Transmission Date: 20140127
  Serious: Yes (Other)
  Sender: FDA-Public Use
  Company Number: GB-TEVA-353209ISR

PATIENT
  Sex: Female

DRUGS (3)
  1. VENLAFAXINE [Suspect]
     Indication: DEPRESSION
     Dosage: 75- 225 MG/ DAY
  2. LITHIUM [Concomitant]
     Indication: BIPOLAR DISORDER
     Dosage: A DOSE OF ^100^
     Dates: start: 201001
  3. DEPAKOTE [Concomitant]
     Indication: BIPOLAR DISORDER
     Dosage: A DOSE OF ^750^
     Dates: start: 201103, end: 201204

REACTIONS (1)
  - Urinary tract infection [Not Recovered/Not Resolved]
